FAERS Safety Report 5479134-9 (Version None)
Quarter: 2007Q4

REPORT INFORMATION
  Report Type: 
  Country: None (occurrence: None)
  Receive Date: 20071006
  Receipt Date: 20070320
  Transmission Date: 20080405
  Serious: Yes (Death, Hospitalization, Other)
  Sender: FDA-Public Use
  Company Number: IT-PFIZER INC-2007022911

PATIENT
  Age: 46 Year
  Sex: Female

DRUGS (2)
  1. DICLOFENAC SODIUM [Suspect]
     Indication: ARTHRITIS
     Route: 030
     Dates: start: 20040901, end: 20040901
  2. KETOROLAC [Concomitant]
     Indication: ABDOMINAL PAIN
     Route: 030
     Dates: start: 20040901

REACTIONS (2)
  - MULTI-ORGAN FAILURE [None]
  - NECROTISING FASCIITIS [None]
